FAERS Safety Report 5157623-4 (Version None)
Quarter: 2006Q4

REPORT INFORMATION
  Report Type: 
  Country: None (occurrence: None)
  Receive Date: 20061127
  Receipt Date: 20061114
  Transmission Date: 20070319
  Serious: Yes (Hospitalization)
  Sender: FDA-Public Use
  Company Number: PHNU2006DE03755

PATIENT
  Age: 73 Year
  Sex: Male

DRUGS (1)
  1. EXJADE [Suspect]
     Indication: MYELODYSPLASTIC SYNDROME
     Dosage: 1500 MG/DAY
     Route: 048
     Dates: start: 20061024, end: 20061106

REACTIONS (4)
  - LEUKOPENIA [None]
  - PYREXIA [None]
  - RASH [None]
  - SEPSIS [None]
